FAERS Safety Report 4489798-4 (Version None)
Quarter: 2004Q4

REPORT INFORMATION
  Report Type: 
  Country: None (occurrence: None)
  Receive Date: 20041026
  Receipt Date: 20041009
  Transmission Date: 20050328
  Serious: Yes (Other)
  Sender: FDA-Public Use
  Company Number: DSA_25165_2004

PATIENT
  Age: 83 Year
  Sex: Male

DRUGS (6)
  1. TEVETEN [Suspect]
     Indication: HYPERTENSION
     Dosage: DF PO
     Route: 048
     Dates: start: 20040101, end: 20040601
  2. VIOXX [Concomitant]
  3. ASPIRIN [Concomitant]
  4. CAPOTEN [Concomitant]
  5. HYDROCHLOROTHIAZIDE [Concomitant]
  6. ALLOPURINOL [Concomitant]

REACTIONS (1)
  - CEREBROVASCULAR ACCIDENT [None]
